FAERS Safety Report 5947929-0 (Version None)
Quarter: 2008Q4

REPORT INFORMATION
  Report Type: 
  Country: None (occurrence: None)
  Receive Date: 20081111
  Receipt Date: 20080908
  Transmission Date: 20090506
  Serious: No
  Sender: FDA-Public Use
  Company Number: A0747395A

PATIENT
  Sex: Female

DRUGS (1)
  1. TREXIMET [Suspect]
     Indication: DRUG USE FOR UNKNOWN INDICATION
     Route: 065

REACTIONS (3)
  - DYSPNOEA [None]
  - LIP SWELLING [None]
  - OEDEMA MOUTH [None]
